FAERS Safety Report 6857646-0 (Version None)
Quarter: 2010Q3

REPORT INFORMATION
  Report Type: 
  Country: None (occurrence: None)
  Receive Date: 20100719
  Receipt Date: 20080128
  Transmission Date: 20110219
  Serious: No
  Sender: FDA-Public Use
  Company Number: US-PFIZER INC-2008010565

PATIENT
  Sex: Male
  Weight: 122.5 kg

DRUGS (4)
  1. CHANTIX [Suspect]
     Indication: SMOKING CESSATION THERAPY
  2. PLAVIX [Concomitant]
  3. SIMVASTATIN [Concomitant]
  4. ACETYLSALICYLIC ACID [Concomitant]

REACTIONS (7)
  - BACK PAIN [None]
  - FEELING ABNORMAL [None]
  - MUSCLE STRAIN [None]
  - PARANASAL SINUS HYPERSECRETION [None]
  - STRESS AT WORK [None]
  - TOBACCO USER [None]
  - VOMITING [None]
